FAERS Safety Report 21066611 (Version 2)
Quarter: 2022Q4

REPORT INFORMATION
  Report Type: Report from Study
  Country: US (occurrence: US)
  Receive Date: 20220711
  Receipt Date: 20221009
  Transmission Date: 20230113
  Serious: Yes (Other)
  Sender: FDA-Public Use
  Company Number: US-ABBVIE-22K-163-4462229-00

PATIENT
  Age: 38 Year
  Sex: Male

DRUGS (4)
  1. SKYRIZI [Suspect]
     Active Substance: RISANKIZUMAB-RZAA
     Indication: Psoriasis
     Route: 058
  2. Covid-19vaccine Pfizer/BioNTech [Concomitant]
     Indication: COVID-19 immunisation
     Dosage: TIME INTERVAL: TOTAL: 3RD DOSE
     Route: 030
     Dates: start: 20211212, end: 20211212
  3. Covid-19vaccine Pfizer/BioNTech [Concomitant]
     Indication: COVID-19 immunisation
     Dosage: TIME INTERVAL: TOTAL: 1ST DOSE
     Route: 030
     Dates: start: 20210405, end: 20210405
  4. Covid-19 vaccine Johnson and Johnson [Concomitant]
     Indication: COVID-19 immunisation
     Dosage: JOHNSON AND JOHNSON
     Route: 030

REACTIONS (3)
  - Limb operation [Recovering/Resolving]
  - Ligament sprain [Unknown]
  - Hand fracture [Recovered/Resolved]

NARRATIVE: CASE EVENT DATE: 20220701
